FAERS Safety Report 25117081 (Version 4)
Quarter: 2025Q3

REPORT INFORMATION
  Report Type: Report from Study
  Country: US (occurrence: US)
  Receive Date: 20250325
  Receipt Date: 20250911
  Transmission Date: 20251021
  Serious: Yes (Other)
  Sender: SUNOVION
  Company Number: US-SUMITOMO PHARMA SWITZERLAND GMBH-2024SPA004675

PATIENT
  Age: 74 Year
  Sex: Male

DRUGS (11)
  1. ORGOVYX [Suspect]
     Active Substance: RELUGOLIX
     Indication: Prostate cancer
     Route: 048
  2. ORGOVYX [Suspect]
     Active Substance: RELUGOLIX
     Dosage: 120 MG, QD, TAKE 1 TABLET (120 MG) BY MOUTH ONCE DAILY AROUND THE SAME TIME EACH DAY AFTER THE FIRST DAY.
     Route: 048
     Dates: start: 20250304
  3. ERLEADA [Suspect]
     Active Substance: APALUTAMIDE
     Indication: Prostate cancer
  4. FAMOTIDINE [Concomitant]
     Active Substance: FAMOTIDINE
     Indication: Dyspepsia
  5. FLUOXETINE HYDROCHLORIDE [Concomitant]
     Active Substance: FLUOXETINE HYDROCHLORIDE
  6. ATORVASTATIN [Concomitant]
     Active Substance: ATORVASTATIN
  7. VITAMIN B12 [Concomitant]
     Active Substance: CYANOCOBALAMIN
  8. VITAMIN D3 [Concomitant]
     Active Substance: CHOLECALCIFEROL
  9. FOLIC ACID [Concomitant]
     Active Substance: FOLIC ACID
  10. ZOLEDRONIC ACID [Concomitant]
     Active Substance: ZOLEDRONIC ACID
  11. NUBEQA [Concomitant]
     Active Substance: DAROLUTAMIDE

REACTIONS (16)
  - Urinary retention [Unknown]
  - Brain fog [Unknown]
  - Full blood count decreased [Unknown]
  - Blood thyroid stimulating hormone increased [Unknown]
  - Confusional state [Unknown]
  - Incontinence [Unknown]
  - Feeling abnormal [Unknown]
  - Speech disorder [Unknown]
  - Anxiety [Unknown]
  - Depression [Unknown]
  - Fatigue [Unknown]
  - Haemoglobin decreased [Unknown]
  - Hot flush [Unknown]
  - Asthenia [Unknown]
  - Extra dose administered [Unknown]
  - Incorrect dose administered [Unknown]

NARRATIVE: CASE EVENT DATE: 20241030
